FAERS Safety Report 10524830 (Version 1)
Quarter: 2014Q4

REPORT INFORMATION
  Report Type: Spontaneous
  Country: FR (occurrence: FR)
  Receive Date: 20141017
  Receipt Date: 20141017
  Transmission Date: 20150528
  Serious: Yes (Other)
  Sender: FDA-Public Use
  Company Number: FR-PFIZER INC-2014281009

PATIENT
  Age: 45 Year
  Sex: Female

DRUGS (10)
  1. CONTRAMAL [Suspect]
     Active Substance: TRAMADOL HYDROCHLORIDE
     Dosage: 150 MG, 2X/DAY
     Route: 048
     Dates: start: 20140825, end: 20140826
  2. CONTRAMAL [Suspect]
     Active Substance: TRAMADOL HYDROCHLORIDE
     Indication: PAIN
     Dosage: 100 MG, 2X/DAY
     Route: 048
     Dates: start: 20140821, end: 20140825
  3. FOLIC ACID. [Concomitant]
     Active Substance: FOLIC ACID
  4. NICOBION [Concomitant]
     Active Substance: NIACINAMIDE
  5. PRINCI-B [Concomitant]
  6. ACUPAN [Suspect]
     Active Substance: NEFOPAM HYDROCHLORIDE
     Indication: PAIN
     Dosage: 20 MG, 3X/DAY
     Dates: start: 20140903, end: 20140908
  7. LYRICA [Suspect]
     Active Substance: PREGABALIN
     Indication: PAIN
     Dosage: 1 DF OF 25 MG, DAILY
     Route: 048
     Dates: start: 20140901, end: 20140904
  8. CONTRAMAL [Suspect]
     Active Substance: TRAMADOL HYDROCHLORIDE
     Dosage: 200 MG, 1X/DAY
     Route: 048
     Dates: start: 20140901, end: 20140908
  9. LYRICA [Suspect]
     Active Substance: PREGABALIN
     Dosage: 2 DF OF 25 MG, DAILY
     Route: 048
     Dates: start: 20140905, end: 20140908
  10. TIAPRIDAL [Concomitant]
     Active Substance: TIAPRIDE HYDROCHLORIDE
     Dosage: 5 DROPS
     Dates: end: 20140908

REACTIONS (10)
  - Delusion [Recovered/Resolved]
  - Aggression [Unknown]
  - Delirium [Recovered/Resolved]
  - Agitation [Unknown]
  - Abnormal behaviour [Unknown]
  - Pancreatic pseudocyst [Unknown]
  - Paranoia [Unknown]
  - Pancreatitis chronic [Unknown]
  - Incoherent [Unknown]
  - Logorrhoea [Unknown]

NARRATIVE: CASE EVENT DATE: 201409
